FAERS Safety Report 4754883-6 (Version None)
Quarter: 2005Q3

REPORT INFORMATION
  Report Type: 
  Country: None (occurrence: None)
  Receive Date: 20050829
  Receipt Date: 20050314
  Transmission Date: 20060218
  Serious: Yes (Hospitalization, Disabling)
  Sender: FDA-Public Use
  Company Number: US-MERCK-0503USA02865

PATIENT
  Age: 52 Year
  Sex: Male
  Weight: 114 kg

DRUGS (4)
  1. VIOXX [Suspect]
     Indication: ARTHRITIS
     Route: 048
     Dates: start: 19990101, end: 20040801
  2. VIOXX [Suspect]
     Indication: OSTEOARTHRITIS
     Route: 048
     Dates: start: 19990101, end: 20040801
  3. IBUPROFEN [Concomitant]
     Indication: PAIN
     Route: 065
  4. IBUPROFEN [Concomitant]
     Indication: INFLAMMATION
     Route: 065

REACTIONS (7)
  - BLOOD CHOLESTEROL INCREASED [None]
  - BLOOD TRIGLYCERIDES INCREASED [None]
  - DEEP VEIN THROMBOSIS [None]
  - DYSPNOEA [None]
  - JOINT SPRAIN [None]
  - MYOCARDIAL INFARCTION [None]
  - SPINAL DISORDER [None]
